FAERS Safety Report 9303741 (Version 4)
Quarter: 2013Q3

REPORT INFORMATION
  Report Type: Spontaneous
  Country: US (occurrence: None)
  Receive Date: 20130122
  Receipt Date: 20130815
  Transmission Date: 20140515
  Serious: Yes (Other)
  Sender: FDA-Public Use
  Company Number: ADR-2012-01462

PATIENT
  Sex: Female

DRUGS (3)
  1. BACLOFEN [Suspect]
     Indication: PAIN
     Dosage: 77.87 MCG/DAY
  2. BUPIVACAINE [Concomitant]
  3. DILAUDID (HYDROMORPHONE) [Concomitant]

REACTIONS (29)
  - Headache [None]
  - Chills [None]
  - Pain [None]
  - Pyrexia [None]
  - Drug withdrawal syndrome [None]
  - Inadequate analgesia [None]
  - Hypoaesthesia [None]
  - Dysstasia [None]
  - Spinal pain [None]
  - Blindness unilateral [None]
  - Muscle spasms [None]
  - Mydriasis [None]
  - Eye disorder [None]
  - Unevaluable event [None]
  - Pain in extremity [None]
  - Pain in extremity [None]
  - Product quality issue [None]
  - Drug effect decreased [None]
  - Product colour issue [None]
  - Bone pain [None]
  - Pain [None]
  - Gait disturbance [None]
  - Hypoaesthesia [None]
  - Pyrexia [None]
  - Abnormal behaviour [None]
  - Intervertebral disc protrusion [None]
  - Eye movement disorder [None]
  - No therapeutic response [None]
  - Overdose [None]
